FAERS Safety Report 14037169 (Version 9)
Quarter: 2018Q4

REPORT INFORMATION
  Report Type: Spontaneous
  Country: IE (occurrence: IE)
  Receive Date: 20171004
  Receipt Date: 20181005
  Transmission Date: 20190204
  Serious: Yes (Other)
  Sender: FDA-Public Use
  Company Number: IE-009507513-1710IRL000642

PATIENT
  Age: 30 Year
  Sex: Male

DRUGS (5)
  1. TAZOBACTAM [Suspect]
     Active Substance: TAZOBACTAM
     Indication: PRODUCT USED FOR UNKNOWN INDICATION
     Dosage: COMPOUNDED WITH SODIUM CHLORIDE. TDS, PIPERACILLIN/TAZOBACTAM 4G POWDER / SOLUTION FOR INJECTION (4.
     Route: 042
     Dates: start: 20170831, end: 20170903
  2. CUBICIN [Suspect]
     Active Substance: DAPTOMYCIN
     Indication: PRODUCT USED FOR UNKNOWN INDICATION
     Dosage: COMPOUNDED WITH SODIUM CHLORIDE, OD, CUBICIN 350 MG, POWDER FOR SOLUTION FOR INJECTION OR INFUSION (
     Route: 042
     Dates: start: 20170831, end: 20170903
  3. SODIUM CHLORIDE. [Suspect]
     Active Substance: SODIUM CHLORIDE
     Dosage: COMPOUNDED WITH PIPERACILLIN/TAZOBACTAM, TDS
     Route: 042
     Dates: start: 20170831, end: 20170903
  4. SODIUM CHLORIDE. [Suspect]
     Active Substance: SODIUM CHLORIDE
     Indication: MEDICATION DILUTION
     Dosage: COMPOUNDED WITH PIPERACILLIN/TAZOBACTAM, TDS
     Route: 042
     Dates: start: 20170831, end: 20170903
  5. PIPERACILLIN. [Suspect]
     Active Substance: PIPERACILLIN SODIUM
     Indication: PRODUCT USED FOR UNKNOWN INDICATION
     Dosage: DOSE: 4500MG/ COMPOUNDED WITH SODIUM CHLORIDE. TDS, PIPERACILLIN/TAZOBACTAM 4G POWDER / SOLUTION FOR
     Route: 042
     Dates: start: 20170831, end: 20170903

REACTIONS (1)
  - Device related infection [Unknown]

NARRATIVE: CASE EVENT DATE: 20170903
